FAERS Safety Report 6416227-3 (Version None)
Quarter: 2009Q4

REPORT INFORMATION
  Report Type: 
  Country: None (occurrence: None)
  Receive Date: 20091027
  Receipt Date: 20091016
  Transmission Date: 20100525
  Serious: Yes (Other)
  Sender: FDA-Public Use
  Company Number: PT-PFIZER INC-2009264676

PATIENT
  Age: 72 Year

DRUGS (7)
  1. NEURONTIN [Suspect]
     Dosage: 600 MG, 3X/DAY
     Route: 048
     Dates: start: 20090805, end: 20090808
  2. ACARBOSE [Concomitant]
     Indication: DIABETES MELLITUS
     Dosage: UNK
  3. METFORMIN HYDROCHLORIDE [Concomitant]
     Indication: DIABETES MELLITUS
     Dosage: UNK
     Route: 048
  4. AMITRIPTYLINE HYDROCHLORIDE [Concomitant]
     Dosage: UNK
     Route: 048
  5. GLICLAZIDE [Concomitant]
     Indication: DIABETES MELLITUS
     Dosage: UNK
  6. LOPRAZOLAM [Concomitant]
     Indication: INSOMNIA
     Dosage: UNK
     Route: 048
  7. IBUPROFEN [Concomitant]
     Route: 048

REACTIONS (9)
  - BLOOD GLUCOSE FLUCTUATION [None]
  - CONFUSIONAL STATE [None]
  - CONVULSION [None]
  - COORDINATION ABNORMAL [None]
  - DIPLOPIA [None]
  - HEART RATE INCREASED [None]
  - INNER EAR DISORDER [None]
  - INSOMNIA [None]
  - PANCREAS INFECTION [None]
